FAERS Safety Report 5843916-1 (Version None)
Quarter: 2008Q3

REPORT INFORMATION
  Report Type: 
  Country: None (occurrence: None)
  Receive Date: 20080731
  Receipt Date: 20080520
  Transmission Date: 20090109
  Serious: No
  Sender: FDA-Public Use
  Company Number: US200803006752

PATIENT
  Age: 39 Year
  Sex: Female
  Weight: 97.1 kg

DRUGS (8)
  1. BYETTA [Suspect]
     Indication: TYPE 2 DIABETES MELLITUS
     Dosage: 5 UG, 2/D, SUBCUTANEOUS ; 5 UG, 2/D, SUBCUTANEOUS
     Route: 058
     Dates: start: 20080329, end: 20080101
  2. BYETTA [Suspect]
     Indication: TYPE 2 DIABETES MELLITUS
     Dosage: 5 UG, 2/D, SUBCUTANEOUS ; 5 UG, 2/D, SUBCUTANEOUS
     Route: 058
     Dates: start: 20080101
  3. METFORMIN HCL [Concomitant]
  4. GLIPIZIDE [Concomitant]
  5. DOXYCYCLINE [Concomitant]
  6. HYDROCHLOROTHIAZIDE [Concomitant]
  7. INSULIN (INSULIN) [Concomitant]
  8. POTASSIUM (POTASSIUM) [Concomitant]

REACTIONS (5)
  - ASTHENIA [None]
  - BLOOD GLUCOSE INCREASED [None]
  - NAUSEA [None]
  - PROCEDURAL PAIN [None]
  - VOMITING [None]
